FAERS Safety Report 10256325 (Version 1)
Quarter: 2014Q2

REPORT INFORMATION
  Report Type: Report from Study
  Country: DE (occurrence: DE)
  Receive Date: 20140624
  Receipt Date: 20140624
  Transmission Date: 20141212
  Serious: Yes (Hospitalization)
  Sender: FDA-Public Use
  Company Number: DE-JNJFOC-20120810553

PATIENT
  Age: 66 Year
  Sex: Male
  Weight: 105 kg

DRUGS (10)
  1. RIVAROXABAN [Suspect]
     Indication: ATRIAL FIBRILLATION
     Route: 048
     Dates: start: 20120712, end: 20120801
  2. RIVAROXABAN [Suspect]
     Indication: CEREBROVASCULAR ACCIDENT PROPHYLAXIS
     Route: 048
     Dates: start: 20120712, end: 20120801
  3. TOREM [Concomitant]
     Dates: start: 20120814
  4. TOREM [Concomitant]
     Dates: start: 20120305, end: 20120813
  5. HCT [Concomitant]
     Dates: start: 20080403, end: 20120813
  6. NEBILET [Concomitant]
     Dates: start: 20080403, end: 20120913
  7. NEBILET [Concomitant]
     Dates: start: 20120814
  8. CLOPIDOGREL [Concomitant]
     Dates: start: 20120305, end: 20120711
  9. EXFORGE [Concomitant]
     Dates: start: 20080403, end: 20120813
  10. EXFORGE [Concomitant]
     Dates: start: 20120814

REACTIONS (4)
  - Intracardiac thrombus [Recovered/Resolved]
  - Atrial flutter [Recovered/Resolved]
  - Intracardiac thrombus [Recovered/Resolved]
  - Atrial flutter [Recovered/Resolved]
